FAERS Safety Report 9356533 (Version 1)
Quarter: 2013Q2

REPORT INFORMATION
  Report Type: Spontaneous
  Country: GB (occurrence: None)
  Receive Date: 20130614
  Receipt Date: 20130614
  Transmission Date: 20140414
  Serious: Yes (Life-Threatening)
  Sender: FDA-Public Use
  Company Number: SYM-2013-04586

PATIENT
  Age: 30 Year
  Sex: Female

DRUGS (5)
  1. METRONIDAZOLE [Suspect]
     Indication: TOOTH ABSCESS
     Route: 048
     Dates: start: 20130509, end: 20130514
  2. AMOXICILLIN [Suspect]
     Indication: TOOTH ABSCESS
     Route: 048
     Dates: start: 20130509, end: 20130514
  3. METRONIDAZOLE (METRONIDAZOLE) (METRONIDAZOLE) [Concomitant]
  4. ANITDEPRESSANTS (ANTIDEPRESSANTS) [Concomitant]
  5. AMOXICILLIN (AMOXICILLIN) (AMOXICILLIN) [Concomitant]

REACTIONS (4)
  - Suicidal behaviour [None]
  - Depression [None]
  - Depressed mood [None]
  - Drug interaction [None]
